FAERS Safety Report 8322829-X (Version None)
Quarter: 2012Q2

REPORT INFORMATION
  Report Type: 
  Country: None (occurrence: None)
  Receive Date: 20120430
  Receipt Date: 20120423
  Transmission Date: 20120825
  Serious: Yes (Hospitalization)
  Sender: FDA-Public Use
  Company Number: PHHY2012JP035233

PATIENT
  Age: 63 Year
  Sex: Male

DRUGS (4)
  1. RIFAMPICIN [Suspect]
     Route: 048
     Dates: start: 20110331
  2. ISONIAZID [Suspect]
     Indication: TUBERCULOUS PLEURISY
     Route: 048
     Dates: start: 20110331
  3. ETHAMBUTOL HYDROCHLORIDE [Suspect]
     Indication: TUBERCULOUS PLEURISY
     Route: 048
     Dates: start: 20110331
  4. PYRAZINAMIDE [Suspect]
     Indication: TUBERCULOUS PLEURISY
     Dates: start: 20110331

REACTIONS (4)
  - PYREXIA [None]
  - DRUG RASH WITH EOSINOPHILIA AND SYSTEMIC SYMPTOMS [None]
  - HEPATIC FUNCTION ABNORMAL [None]
  - ERYTHEMA [None]
